FAERS Safety Report 6879868-5 (Version None)
Quarter: 2010Q3

REPORT INFORMATION
  Report Type: 
  Country: None (occurrence: None)
  Receive Date: 20100728
  Receipt Date: 20100722
  Transmission Date: 20110219
  Serious: Yes (Hospitalization, Other)
  Sender: FDA-Public Use
  Company Number: CA-B.I. PHARMACEUTICALS,INC./RIDGEFIELD-2010-CN-00476CN

PATIENT
  Age: 70 Year
  Sex: Male
  Weight: 72.6 kg

DRUGS (9)
  1. SPIRIVA [Suspect]
     Route: 055
  2. HUMIRA [Suspect]
     Dosage: 2.8571 MG
     Route: 058
  3. FIORINAL [Concomitant]
     Route: 048
  4. FUROSEMIDE [Concomitant]
     Route: 048
  5. IPRATROPIUM BROMIDE [Concomitant]
     Route: 055
  6. IRON [Concomitant]
     Route: 048
  7. METOPROLOL TARTRATE [Concomitant]
     Route: 048
  8. RAMIPRIL [Concomitant]
     Route: 031
  9. ALBUTEROL [Concomitant]
     Route: 055

REACTIONS (9)
  - FALL [None]
  - HIP FRACTURE [None]
  - HYPERSENSITIVITY [None]
  - ORTHOPEDIC PROCEDURE [None]
  - PAIN [None]
  - PRURITUS [None]
  - URTICARIA [None]
  - WALKING AID USER [None]
  - WEIGHT DECREASED [None]
